FAERS Safety Report 23845619 (Version 1)
Quarter: 2024Q2

REPORT INFORMATION
  Report Type: Report from Study
  Country: US (occurrence: US)
  Receive Date: 20240511
  Receipt Date: 20240511
  Transmission Date: 20240716
  Serious: Yes (Life-Threatening, Other)
  Sender: FDA-Public Use
  Company Number: US-ABBVIE-5754446

PATIENT
  Age: 42 Year
  Sex: Female
  Weight: 68 kg

DRUGS (2)
  1. VIIBRYD [Suspect]
     Active Substance: VILAZODONE HYDROCHLORIDE
     Indication: Depression
     Dosage: FORM STRENGTH: 40 MILLIGRAM
     Route: 048
     Dates: start: 201412, end: 201708
  2. VIIBRYD [Suspect]
     Active Substance: VILAZODONE HYDROCHLORIDE
     Indication: Depression
     Dosage: FORM STRENGTH: 40 MILLIGRAM
     Route: 048
     Dates: start: 201710

REACTIONS (4)
  - Suicidal ideation [Recovered/Resolved]
  - Loss of consciousness [Recovered/Resolved]
  - Depression [Recovered/Resolved]
  - Aggression [Recovered/Resolved]

NARRATIVE: CASE EVENT DATE: 20170801
